FAERS Safety Report 22898163 (Version 5)
Quarter: 2025Q3

REPORT INFORMATION
  Report Type: Spontaneous
  Country: US (occurrence: US)
  Receive Date: 20230903
  Receipt Date: 20250910
  Transmission Date: 20251020
  Serious: Yes (Other)
  Sender: SANDOZ
  Company Number: US-SANDOZ-SDZ2023US017975

PATIENT

DRUGS (8)
  1. CLOBETASOL [Suspect]
     Active Substance: CLOBETASOL
     Indication: Psoriasis
     Route: 065
  2. FLUCONAZOLE [Suspect]
     Active Substance: FLUCONAZOLE
     Indication: Psoriasis
     Route: 065
  3. FLUCONAZOLE [Suspect]
     Active Substance: FLUCONAZOLE
     Indication: Psoriasis
  4. FLUOCINOLONE [Suspect]
     Active Substance: FLUOCINOLONE
     Indication: Psoriasis
     Route: 065
  5. HYDROCORTISONE [Suspect]
     Active Substance: HYDROCORTISONE
     Indication: Psoriasis
     Route: 065
  6. KETOCONAZOLE [Suspect]
     Active Substance: KETOCONAZOLE
     Indication: Psoriasis
     Route: 065
  7. TACROLIMUS [Suspect]
     Active Substance: TACROLIMUS
     Indication: Psoriasis
     Route: 065
  8. TRIAMCINOLONE [Suspect]
     Active Substance: TRIAMCINOLONE
     Indication: Psoriasis
     Route: 065

REACTIONS (18)
  - Psoriatic arthropathy [Unknown]
  - Eczema [Unknown]
  - Lichenification [Unknown]
  - Skin ulcer [Unknown]
  - Psoriasis [Unknown]
  - Dermatitis [Unknown]
  - Blood sodium decreased [Unknown]
  - Aspartate aminotransferase increased [Unknown]
  - Blood alkaline phosphatase decreased [Unknown]
  - Alanine aminotransferase abnormal [Unknown]
  - Guttate psoriasis [Unknown]
  - Nodule [Unknown]
  - Erythema [Unknown]
  - Skin hyperpigmentation [Unknown]
  - Condition aggravated [Unknown]
  - Therapeutic product effect incomplete [Unknown]
  - Drug ineffective [Unknown]
  - Product use in unapproved indication [Unknown]
